FAERS Safety Report 15165498 (Version 3)
Quarter: 2018Q3

REPORT INFORMATION
  Report Type: Report from Study
  Country: IT (occurrence: IT)
  Receive Date: 20180719
  Receipt Date: 20180912
  Transmission Date: 20181010
  Serious: Yes (Death, Life-Threatening)
  Sender: FDA-Public Use
  Company Number: IT-PFIZER INC-2018286573

PATIENT
  Age: 40 Year
  Sex: Female
  Weight: 71 kg

DRUGS (5)
  1. ACICLOVIR [Concomitant]
     Active Substance: ACYCLOVIR
     Indication: ANTIVIRAL TREATMENT
     Dosage: UNK
     Route: 042
     Dates: start: 20120625
  2. SIROLIMUS. [Suspect]
     Active Substance: SIROLIMUS
     Indication: STEM CELL TRANSPLANT
     Dosage: TARGET SERUM CONCENTRATION OF 10?15 NG/ML BY HPLC DAILY
     Dates: start: 20120529, end: 20120615
  3. FOSCAVIR [Suspect]
     Active Substance: FOSCARNET SODIUM
     Indication: ANTIVIRAL TREATMENT
     Dosage: UNK
     Route: 042
     Dates: start: 20120528, end: 20120605
  4. TREOSULFAN [Suspect]
     Active Substance: TREOSULFAN
     Indication: STEM CELL TRANSPLANT
     Dosage: UNK
     Dates: start: 20120530, end: 20120601
  5. FOSCAVIR [Suspect]
     Active Substance: FOSCARNET SODIUM
     Dosage: UNK
     Route: 042
     Dates: start: 20120619, end: 20120625

REACTIONS (2)
  - Microangiopathy [Fatal]
  - Multiple organ dysfunction syndrome [Fatal]

NARRATIVE: CASE EVENT DATE: 20120605
